FAERS Safety Report 6368011-7 (Version None)
Quarter: 2009Q3

REPORT INFORMATION
  Report Type: 
  Country: None (occurrence: None)
  Receive Date: 20090922
  Receipt Date: 20090917
  Transmission Date: 20100115
  Serious: Yes (Other)
  Sender: FDA-Public Use
  Company Number: US-JNJFOC-20090905789

PATIENT
  Age: 43 Year
  Sex: Male
  Weight: 124.74 kg

DRUGS (8)
  1. INVEGA [Suspect]
     Indication: SCHIZOAFFECTIVE DISORDER
     Route: 048
  2. RISPERDAL [Suspect]
     Indication: SCHIZOAFFECTIVE DISORDER
  3. DEPAKOTE [Concomitant]
  4. LEVOTHYROXINE SODIUM [Concomitant]
     Indication: HYPOTHYROIDISM
  5. SULINDAC [Concomitant]
  6. OXYBUTIN [Concomitant]
  7. CHANTIX [Concomitant]
  8. CLONAZEPAM [Concomitant]

REACTIONS (4)
  - ANORGASMIA [None]
  - EJACULATION DISORDER [None]
  - ERECTILE DYSFUNCTION [None]
  - PITUITARY TUMOUR [None]
